FAERS Safety Report 21915614 (Version 2)
Quarter: 2023Q1

REPORT INFORMATION
  Report Type: Spontaneous
  Country: US (occurrence: US)
  Receive Date: 20230126
  Receipt Date: 20230131
  Transmission Date: 20230418
  Serious: Yes (Hospitalization, Other)
  Sender: FDA-Public Use
  Company Number: US-MLMSERVICE-20230116-4041489-1

PATIENT
  Age: 83 Year
  Sex: Female

DRUGS (8)
  1. METHOTREXATE SODIUM [Suspect]
     Active Substance: METHOTREXATE SODIUM
     Indication: Central nervous system lymphoma
     Dosage: 1000 MG/M2
  2. RITUXIMAB [Concomitant]
     Active Substance: RITUXIMAB
     Indication: Central nervous system lymphoma
     Dosage: UNK
  3. MIDODRINE [Concomitant]
     Active Substance: MIDODRINE
     Dosage: 2.5 MG, 2X/DAY (FREQ: 12 H)
  4. APIXABAN [Concomitant]
     Active Substance: APIXABAN
     Indication: Pulmonary embolism
     Dosage: UNK
  5. TEMOZOLOMIDE [Concomitant]
     Active Substance: TEMOZOLOMIDE
     Indication: Central nervous system lymphoma
     Dosage: UNK
  6. DESMOPRESSIN [Concomitant]
     Active Substance: DESMOPRESSIN
     Dosage: 200 UG, 2X/DAY (FREQ: 12 H)
     Route: 048
  7. PREDNISONE [Concomitant]
     Active Substance: PREDNISONE
     Dosage: 10 MG, 1X/DAY
  8. LEVOTHYROXINE [Concomitant]
     Active Substance: LEVOTHYROXINE
     Dosage: 88 UG, 1X/DAY

REACTIONS (1)
  - Hyperammonaemic encephalopathy [Recovered/Resolved]
